FAERS Safety Report 20431301 (Version 1)
Quarter: 2022Q1

REPORT INFORMATION
  Report Type: Spontaneous
  Country: AU (occurrence: AU)
  Receive Date: 20220204
  Receipt Date: 20220204
  Transmission Date: 20220423
  Serious: Yes (Life-Threatening, Hospitalization)
  Sender: FDA-Public Use
  Company Number: AU-ELI_LILLY_AND_COMPANY-AU202202000623

PATIENT
  Age: 51 Year
  Sex: Female

DRUGS (3)
  1. FLUOXETINE HYDROCHLORIDE [Suspect]
     Active Substance: FLUOXETINE HYDROCHLORIDE
     Indication: Depression
     Dosage: 20 MG, DAILY
     Route: 048
  2. METOCLOPRAMIDE [Interacting]
     Active Substance: METOCLOPRAMIDE
     Indication: Vomiting
     Dosage: 10 MG, UNKNOWN
     Route: 042
  3. ONDANSETRON [Interacting]
     Active Substance: ONDANSETRON
     Indication: Vomiting
     Dosage: 8 MG, UNKNOWN
     Route: 042

REACTIONS (10)
  - Cardiac arrest [Recovered/Resolved]
  - Ventricular tachycardia [Unknown]
  - Long QT syndrome [Unknown]
  - Abdominal pain [Unknown]
  - Dehydration [Unknown]
  - Hypokalaemia [Unknown]
  - Hypomagnesaemia [Unknown]
  - Viral infection [Unknown]
  - Vomiting [Recovered/Resolved]
  - Drug interaction [Unknown]
